FAERS Safety Report 24856772 (Version 3)
Quarter: 2025Q1

REPORT INFORMATION
  Report Type: Spontaneous
  Country: JP (occurrence: JP)
  Receive Date: 20250117
  Receipt Date: 20250303
  Transmission Date: 20250409
  Serious: Yes (Hospitalization, Other)
  Sender: ASTELLAS
  Company Number: JP-ASTELLAS-2025-AER-001189

PATIENT
  Age: 58 Year
  Sex: Female

DRUGS (35)
  1. XOSPATA [Suspect]
     Active Substance: GILTERITINIB
     Indication: Acute myeloid leukaemia
     Route: 065
  2. XOSPATA [Suspect]
     Active Substance: GILTERITINIB
     Route: 065
  3. XOSPATA [Suspect]
     Active Substance: GILTERITINIB
     Route: 065
  4. XOSPATA [Suspect]
     Active Substance: GILTERITINIB
     Route: 065
  5. XOSPATA [Suspect]
     Active Substance: GILTERITINIB
     Route: 065
  6. XOSPATA [Suspect]
     Active Substance: GILTERITINIB
     Route: 065
  7. XOSPATA [Suspect]
     Active Substance: GILTERITINIB
     Route: 065
  8. XOSPATA [Suspect]
     Active Substance: GILTERITINIB
     Route: 065
  9. FLUDARABINE [Concomitant]
     Active Substance: FLUDARABINE PHOSPHATE
     Indication: Acute myeloid leukaemia
     Route: 065
  10. MELPHALAN [Concomitant]
     Active Substance: MELPHALAN
     Indication: Acute myeloid leukaemia
     Route: 065
  11. BUSULFAN [Concomitant]
     Active Substance: BUSULFAN
     Indication: Acute myeloid leukaemia
     Route: 042
  12. RITUXIMAB [Concomitant]
     Active Substance: RITUXIMAB
     Indication: Epstein-Barr virus associated lymphoproliferative disorder
     Route: 065
  13. PREDONINE [Concomitant]
     Active Substance: PREDNISOLONE
     Indication: Graft versus host disease
     Route: 065
  14. PREDONINE [Concomitant]
     Active Substance: PREDNISOLONE
     Indication: Differentiation syndrome
     Route: 065
  15. PREDONINE [Concomitant]
     Active Substance: PREDNISOLONE
     Indication: Pyrexia
     Route: 065
  16. PREDONINE [Concomitant]
     Active Substance: PREDNISOLONE
     Indication: Prophylaxis
     Route: 065
  17. PREDONINE [Concomitant]
     Active Substance: PREDNISOLONE
     Route: 065
  18. PREDONINE [Concomitant]
     Active Substance: PREDNISOLONE
     Route: 065
  19. PREDONINE [Concomitant]
     Active Substance: PREDNISOLONE
     Route: 065
  20. PREDONINE [Concomitant]
     Active Substance: PREDNISOLONE
     Route: 065
  21. PREDONINE [Concomitant]
     Active Substance: PREDNISOLONE
     Route: 065
  22. LEVOFLOXACIN [Concomitant]
     Active Substance: LEVOFLOXACIN
     Indication: Product used for unknown indication
     Route: 065
  23. LEVOFLOXACIN [Concomitant]
     Active Substance: LEVOFLOXACIN
     Route: 065
  24. FAROPENEM [Concomitant]
     Active Substance: FAROPENEM
     Indication: Product used for unknown indication
     Route: 065
  25. FAROPENEM [Concomitant]
     Active Substance: FAROPENEM
     Route: 065
  26. SULFAMETHOXAZOLE AND TRIMETHOPRIM [Concomitant]
     Active Substance: SULFAMETHOXAZOLE\TRIMETHOPRIM
     Indication: Product used for unknown indication
     Route: 065
  27. LASCUFLOXACIN [Concomitant]
     Active Substance: LASCUFLOXACIN
     Indication: Product used for unknown indication
     Route: 065
  28. QUIZARTINIB [Concomitant]
     Active Substance: QUIZARTINIB
     Indication: Acute myeloid leukaemia
     Route: 065
  29. QUIZARTINIB [Concomitant]
     Active Substance: QUIZARTINIB
     Route: 065
  30. HYDREA [Concomitant]
     Active Substance: HYDROXYUREA
     Indication: Acute myeloid leukaemia
     Route: 065
  31. HYDREA [Concomitant]
     Active Substance: HYDROXYUREA
     Route: 065
  32. HYDREA [Concomitant]
     Active Substance: HYDROXYUREA
     Route: 065
  33. VENETOCLAX [Concomitant]
     Active Substance: VENETOCLAX
     Indication: Acute myeloid leukaemia
     Route: 065
  34. AZACITIDINE [Concomitant]
     Active Substance: AZACITIDINE
     Indication: Acute myeloid leukaemia
     Route: 065
  35. AZACITIDINE [Concomitant]
     Active Substance: AZACITIDINE
     Route: 065

REACTIONS (15)
  - Acute myeloid leukaemia recurrent [Unknown]
  - Epstein-Barr virus associated lymphoproliferative disorder [Unknown]
  - Cytomegalovirus gastroenteritis [Unknown]
  - Acute myeloid leukaemia [Unknown]
  - Differentiation syndrome [Recovering/Resolving]
  - Rash [Recovering/Resolving]
  - Pruritus [Recovering/Resolving]
  - Diarrhoea [Recovering/Resolving]
  - Pyrexia [Unknown]
  - Oedema [Unknown]
  - Drug resistance mutation [Unknown]
  - Product use issue [Unknown]
  - Off label use [Unknown]
  - Generalised oedema [Recovering/Resolving]
  - Pyrexia [Recovering/Resolving]
